FAERS Safety Report 8479561-1 (Version None)
Quarter: 2012Q2

REPORT INFORMATION
  Report Type: 
  Country: None (occurrence: None)
  Receive Date: 20120629
  Receipt Date: 20120621
  Transmission Date: 20120825
  Serious: Yes (Death)
  Sender: FDA-Public Use
  Company Number: JP-PFIZER INC-2012153423

PATIENT
  Age: 70 Year
  Sex: Female

DRUGS (1)
  1. FOSPHENYTOIN SODIUM [Suspect]
     Dosage: 750 MG, 1X/DAY
     Route: 042
     Dates: start: 20120401

REACTIONS (1)
  - DEATH [None]
